FAERS Safety Report 5145525-9 (Version None)
Quarter: 2006Q4

REPORT INFORMATION
  Report Type: 
  Country: None (occurrence: None)
  Receive Date: 20061101
  Receipt Date: 20061016
  Transmission Date: 20070319
  Serious: Yes (Death, Hospitalization)
  Sender: FDA-Public Use
  Company Number: 202911

PATIENT
  Age: 66 Year
  Sex: Male
  Weight: 90.7194 kg

DRUGS (6)
  1. AVONEX [Suspect]
     Dosage: 30 UG; QW; IM; 15 UG; QW; IM; 30 UG; QW; IM
     Route: 030
     Dates: start: 20000101, end: 20030801
  2. AVONEX [Suspect]
     Dosage: 30 UG; QW; IM; 15 UG; QW; IM; 30 UG; QW; IM
     Route: 030
     Dates: start: 20040717, end: 20040731
  3. AVONEX [Suspect]
     Dosage: 30 UG; QW; IM; 15 UG; QW; IM; 30 UG; QW; IM
     Route: 030
     Dates: start: 20040807
  4. TEGRETOL [Concomitant]
  5. LIPITOR [Concomitant]
  6. MIRAPEX [Concomitant]

REACTIONS (9)
  - APPLICATION SITE REACTION [None]
  - BILE DUCT OBSTRUCTION [None]
  - BLOOD CHOLESTEROL INCREASED [None]
  - DIFFUSE LARGE B-CELL LYMPHOMA STAGE IV [None]
  - GASTROINTESTINAL DISORDER [None]
  - INJECTION SITE ERYTHEMA [None]
  - INJECTION SITE RASH [None]
  - MULTIPLE SCLEROSIS [None]
  - WEIGHT DECREASED [None]
